FAERS Safety Report 8236966-1 (Version None)
Quarter: 2012Q1

REPORT INFORMATION
  Report Type: 
  Country: None (occurrence: None)
  Receive Date: 20120327
  Receipt Date: 20120320
  Transmission Date: 20120608
  Serious: Yes (Death, Other)
  Sender: FDA-Public Use
  Company Number: US-CELGENEUS-163-21880-12032290

PATIENT
  Sex: Female

DRUGS (1)
  1. REVLIMID [Suspect]
     Indication: B-CELL LYMPHOMA
     Dosage: 5 MILLIGRAM
     Route: 048
     Dates: start: 20120201

REACTIONS (5)
  - RENAL FAILURE [None]
  - APHTHOUS STOMATITIS [None]
  - B-CELL LYMPHOMA [None]
  - CARDIAC FAILURE [None]
  - IMMUNE SYSTEM DISORDER [None]
